FAERS Safety Report 10165711 (Version 1)
Quarter: 2014Q2

REPORT INFORMATION
  Report Type: Spontaneous
  Country: US (occurrence: US)
  Receive Date: 20140510
  Receipt Date: 20140510
  Transmission Date: 20141212
  Serious: No
  Sender: FDA-Public Use
  Company Number: US-BRISTOL-MYERS SQUIBB COMPANY-19900612

PATIENT
  Age: 74 Year
  Sex: Male
  Weight: 85.71 kg

DRUGS (9)
  1. BYDUREON  2MG SUSPENSION [Suspect]
     Indication: TYPE 2 DIABETES MELLITUS
     Route: 058
  2. LANTUS [Concomitant]
     Dosage: 34UNITS SQ INJECTION QHS
     Route: 058
  3. METFORMIN [Concomitant]
  4. SYNTHROID [Concomitant]
  5. LISINOPRIL [Concomitant]
  6. LOVASTATIN [Concomitant]
  7. TORSEMIDE [Concomitant]
  8. SPIRONOLACTONE [Concomitant]
  9. VITAMINS [Concomitant]

REACTIONS (5)
  - Nausea [Unknown]
  - Vomiting projectile [Unknown]
  - Decreased appetite [Unknown]
  - Injection site haemorrhage [Unknown]
  - Fatigue [Unknown]
